FAERS Safety Report 10596592 (Version 1)
Quarter: 2014Q4

REPORT INFORMATION
  Report Type: Spontaneous
  Country: IN (occurrence: IN)
  Receive Date: 20141120
  Receipt Date: 20141120
  Transmission Date: 20150529
  Serious: Yes (Other)
  Sender: FDA-Public Use
  Company Number: IN-WATSON-2014-24805

PATIENT
  Age: 5 Year
  Sex: Female

DRUGS (1)
  1. SODIUM VALPROATE (UNKNOWN) [Suspect]
     Active Substance: VALPROATE SODIUM
     Indication: EPILEPSY
     Dosage: 5 ML, BID
     Route: 065

REACTIONS (2)
  - Gingival hyperplasia [Recovered/Resolved]
  - Anticonvulsant drug level increased [Unknown]
